FAERS Safety Report 24921382 (Version 1)
Quarter: 2025Q1

REPORT INFORMATION
  Report Type: Spontaneous
  Country: US (occurrence: US)
  Receive Date: 20250204
  Receipt Date: 20250204
  Transmission Date: 20250408
  Serious: Yes (Hospitalization, Other)
  Sender: Norvium Bioscience
  Company Number: US-Norvium Bioscience LLC-079859

PATIENT
  Age: 25 Year
  Sex: Male

DRUGS (6)
  1. ERYTHROMYCIN STEARATE [Suspect]
     Active Substance: ERYTHROMYCIN STEARATE
     Indication: Cough
  2. DOXYCYCLINE [Suspect]
     Active Substance: DOXYCYCLINE
     Indication: Pneumonia
  3. ERYTHROMYCIN STEARATE [Suspect]
     Active Substance: ERYTHROMYCIN STEARATE
     Indication: Pyrexia
  4. ERYTHROMYCIN STEARATE [Suspect]
     Active Substance: ERYTHROMYCIN STEARATE
     Indication: Chills
  5. ERYTHROMYCIN STEARATE [Suspect]
     Active Substance: ERYTHROMYCIN STEARATE
     Indication: Headache
  6. ERYTHROMYCIN STEARATE [Suspect]
     Active Substance: ERYTHROMYCIN STEARATE
     Indication: Pain

REACTIONS (6)
  - Rhabdomyolysis [Recovering/Resolving]
  - Renal failure [Recovering/Resolving]
  - Generalised oedema [Recovering/Resolving]
  - Anaemia [Recovering/Resolving]
  - Hypocalcaemia [Recovering/Resolving]
  - Hyperphosphataemia [Unknown]
